FAERS Safety Report 14342886 (Version 1)
Quarter: 2017Q4

REPORT INFORMATION
  Report Type: Spontaneous
  Country: US (occurrence: US)
  Receive Date: 20171229
  Receipt Date: 20171229
  Transmission Date: 20180321
  Serious: Yes (Life-Threatening, Other)
  Sender: FDA-Public Use
  Company Number: None

PATIENT
  Age: 40 Year
  Sex: Female
  Weight: 68.4 kg

DRUGS (4)
  1. XULANE [Suspect]
     Active Substance: ETHINYL ESTRADIOL\NORELGESTROMIN
     Indication: HORMONE LEVEL ABNORMAL
     Dosage: ?          OTHER STRENGTH:MCG;QUANTITY:3 PATCH(ES);OTHER FREQUENCY:ONCE A WEEK;?
     Route: 062
  2. XOPENEX [Concomitant]
     Active Substance: LEVALBUTEROL HYDROCHLORIDE
  3. MULTIVITAMIN [Concomitant]
     Active Substance: VITAMINS
  4. XULANE [Suspect]
     Active Substance: ETHINYL ESTRADIOL\NORELGESTROMIN
     Indication: CONTRACEPTION
     Dosage: ?          OTHER STRENGTH:MCG;QUANTITY:3 PATCH(ES);OTHER FREQUENCY:ONCE A WEEK;?
     Route: 062

REACTIONS (5)
  - Haemorrhage [None]
  - Scratch [None]
  - Application site pruritus [None]
  - Hypersensitivity [None]
  - Staphylococcal infection [None]

NARRATIVE: CASE EVENT DATE: 20170827
